FAERS Safety Report 17636348 (Version 1)
Quarter: 2020Q2

REPORT INFORMATION
  Report Type: Spontaneous
  Country: TW (occurrence: TW)
  Receive Date: 20200407
  Receipt Date: 20200407
  Transmission Date: 20200713
  Serious: Yes (Death, Hospitalization)
  Sender: FDA-Public Use
  Company Number: TW-ROCHE-2576809

PATIENT
  Age: 70 Year
  Sex: Female

DRUGS (1)
  1. XOLAIR [Suspect]
     Active Substance: OMALIZUMAB
     Indication: ASTHMA
     Route: 065
     Dates: start: 20080505

REACTIONS (4)
  - Thermal burn [Fatal]
  - Sepsis [Fatal]
  - Dementia [Fatal]
  - Fall [Fatal]

NARRATIVE: CASE EVENT DATE: 20170101
